FAERS Safety Report 19276804 (Version 2)
Quarter: 2021Q2

REPORT INFORMATION
  Report Type: Spontaneous
  Country: US (occurrence: US)
  Receive Date: 20210519
  Receipt Date: 20210614
  Transmission Date: 20210717
  Serious: Yes (Hospitalization)
  Sender: FDA-Public Use
  Company Number: US-JNJFOC-20210522141

PATIENT
  Sex: Female

DRUGS (5)
  1. ARMOUR THYROID [Concomitant]
     Active Substance: THYROID, PORCINE
     Indication: PRODUCT USED FOR UNKNOWN INDICATION
     Route: 065
  2. TOPAMAX [Suspect]
     Active Substance: TOPIRAMATE
     Indication: NERVOUS SYSTEM DISORDER
     Route: 048
     Dates: start: 202010
  3. TOPAMAX [Interacting]
     Active Substance: TOPIRAMATE
     Route: 048
     Dates: start: 20210508
  4. JANSSEN COVID?19 VACCINE [Suspect]
     Active Substance: AD26.COV2.S
     Indication: IMMUNISATION
     Route: 065
     Dates: start: 20210319, end: 20210319
  5. TOPAMAX [Interacting]
     Active Substance: TOPIRAMATE
     Route: 065

REACTIONS (8)
  - Paraesthesia [Unknown]
  - Product dose omission issue [Unknown]
  - Hypoaesthesia [Not Recovered/Not Resolved]
  - Drug interaction [Unknown]
  - Hyperthyroidism [Recovered/Resolved]
  - Seizure [Unknown]
  - Visual impairment [Unknown]
  - Heart rate irregular [Unknown]

NARRATIVE: CASE EVENT DATE: 2021
